FAERS Safety Report 8345677-3 (Version None)
Quarter: 2012Q2

REPORT INFORMATION
  Report Type: 
  Country: None (occurrence: None)
  Receive Date: 20120508
  Receipt Date: 20120427
  Transmission Date: 20120825
  Serious: Yes (Other)
  Sender: FDA-Public Use
  Company Number: JP-SANTEN INC.-INC-12-000133

PATIENT
  Sex: Female
  Weight: 46 kg

DRUGS (2)
  1. LEVOFLOXACIN [Suspect]
     Indication: INFECTION PROPHYLAXIS
     Route: 047
     Dates: start: 20120425, end: 20120501
  2. SIROLIMUS [Suspect]
     Route: 031
     Dates: start: 20120425, end: 20120425

REACTIONS (1)
  - ENDOPHTHALMITIS [None]
